APPROVED DRUG PRODUCT: IRINOTECAN HYDROCHLORIDE
Active Ingredient: IRINOTECAN HYDROCHLORIDE
Strength: 100MG/5ML (20MG/ML)
Dosage Form/Route: INJECTABLE;INJECTION
Application: A090393 | Product #003 | TE Code: AP
Applicant: PHARMOBEDIENT CONSULTING LLC
Approved: May 13, 2011 | RLD: No | RS: No | Type: RX